FAERS Safety Report 5285919-4 (Version None)
Quarter: 2007Q1

REPORT INFORMATION
  Report Type: 
  Country: None (occurrence: None)
  Receive Date: 20070328
  Receipt Date: 20070312
  Transmission Date: 20070707
  Serious: Yes (Hospitalization)
  Sender: FDA-Public Use
  Company Number: A-NJ2007-14586

PATIENT
  Age: 37 Year
  Sex: Male

DRUGS (6)
  1. TRACLEER [Suspect]
     Indication: PULMONARY HYPERTENSION
     Dosage: 125 MG, BID, ORAL, 62.5 MG, BID, ORAL
     Route: 048
     Dates: start: 20040726, end: 20040801
  2. TRACLEER [Suspect]
     Indication: PULMONARY HYPERTENSION
     Dosage: 125 MG, BID, ORAL, 62.5 MG, BID, ORAL
     Route: 048
     Dates: start: 20040801, end: 20070228
  3. DIGOXIN [Concomitant]
  4. SILDENAFIL CITRATE [Concomitant]
  5. WARFARIN SODIUM [Concomitant]
  6. OXYGEN (OXYGEN) [Concomitant]

REACTIONS (2)
  - MUSCLE INJURY [None]
  - PERICARDITIS [None]
